FAERS Safety Report 23150416 (Version 1)
Quarter: 2023Q4

REPORT INFORMATION
  Report Type: Spontaneous
  Country: US (occurrence: None)
  Receive Date: 20231106
  Receipt Date: 20231106
  Transmission Date: 20240110
  Serious: Yes (Hospitalization)
  Sender: FDA-Public Use
  Company Number: None

PATIENT
  Sex: Male

DRUGS (18)
  1. TACROLIMUS [Suspect]
     Active Substance: TACROLIMUS
     Indication: Renal transplant
     Dosage: FREQUENCY : AS DIRECTED;?
     Route: 048
  2. TACROLIMUS [Suspect]
     Active Substance: TACROLIMUS
     Route: 048
  3. ALLOPURINOL [Concomitant]
     Active Substance: ALLOPURINOL
  4. ATORVASTATIN [Concomitant]
     Active Substance: ATORVASTATIN
  5. CALCIATRIOL CAP 0.25 MCG [Concomitant]
  6. CODEINE/GG SOL [Concomitant]
  7. EXOXAPARIN INJ [Concomitant]
  8. LOSARTAN POT TAB [Concomitant]
  9. METOPROL TAR TAB [Concomitant]
  10. MYCOPHENOLAT TAB [Concomitant]
  11. MYCOPHENOLATE [Concomitant]
  12. NIFEDIPINE [Concomitant]
  13. OMEPRAZOLE SODIUM [Concomitant]
     Active Substance: OMEPRAZOLE SODIUM
  14. PRAVASTATIN TAB [Concomitant]
  15. PREDNISONE [Concomitant]
  16. TRADJENTA [Concomitant]
  17. VITAMIN D CAP [Concomitant]
  18. VITAMIN D CAP [Concomitant]

REACTIONS (2)
  - Localised infection [None]
  - Toe amputation [None]
